FAERS Safety Report 4352447-X (Version None)
Quarter: 2004Q2

REPORT INFORMATION
  Report Type: 
  Country: None (occurrence: None)
  Receive Date: 20040409
  Receipt Date: 20040209
  Transmission Date: 20050107
  Serious: No
  Sender: FDA-Public Use
  Company Number: PHEH2004US01747

PATIENT
  Age: 65 Year
  Sex: Male

DRUGS (12)
  1. ELIDEL [Suspect]
     Indication: ECZEMA
     Dosage: BID, TOPICAL
     Route: 061
     Dates: start: 20030901, end: 20040209
  2. ATENOLOL [Concomitant]
  3. DIGITEK [Concomitant]
  4. SYNTHROID [Concomitant]
  5. LASIX [Concomitant]
  6. KLOR-CON [Concomitant]
  7. LOPID [Concomitant]
  8. ZOCOR [Concomitant]
  9. ASPIRIN [Concomitant]
  10. INSULIN HUMULIN 70/30 (INSULIN HUMAN INJECTION, ISOPHANE, INSULIN HUMA [Concomitant]
  11. INSULIN REGULAR (INSULIN) [Concomitant]
  12. PANCREASE [Concomitant]

REACTIONS (2)
  - SKIN LESION [None]
  - URTICARIA [None]
